FAERS Safety Report 18293714 (Version 1)
Quarter: 2020Q3

REPORT INFORMATION
  Report Type: Other
  Country: US (occurrence: US)
  Receive Date: 20200921
  Receipt Date: 20200921
  Transmission Date: 20201103
  Serious: No
  Sender: FDA-Public Use
  Company Number: US-ACORDA-ACO_165605_2020

PATIENT
  Age: 38 Year
  Sex: Female

DRUGS (3)
  1. OTHER THERAPEUTIC PRODUCTS [Suspect]
     Active Substance: UNSPECIFIED INGREDIENT
     Indication: MIGRAINE
     Dosage: UNK
     Route: 065
  2. INBRIJA [Suspect]
     Active Substance: LEVODOPA
     Indication: ON AND OFF PHENOMENON
  3. INBRIJA [Suspect]
     Active Substance: LEVODOPA
     Indication: DYSTONIA
     Dosage: 84 MILLIGRAM, AS NEEDED (NOT TO EXCEED 5 DOSES PER DAY)
     Dates: start: 20200713

REACTIONS (18)
  - Product residue present [Unknown]
  - Wheezing [Recovered/Resolved]
  - Off label use [Unknown]
  - Device issue [Unknown]
  - Migraine [Unknown]
  - Therapeutic response unexpected [Unknown]
  - Muscle disorder [Unknown]
  - Headache [Unknown]
  - Product taste abnormal [Unknown]
  - Upper-airway cough syndrome [Unknown]
  - Illness [Unknown]
  - Throat irritation [Unknown]
  - Cough [Recovered/Resolved]
  - Respiratory disorder [Unknown]
  - Product physical issue [Unknown]
  - Device occlusion [Unknown]
  - Product container issue [Unknown]
  - Burning sensation [Unknown]

NARRATIVE: CASE EVENT DATE: 20200716
